FAERS Safety Report 20538512 (Version 1)
Quarter: 2022Q1

REPORT INFORMATION
  Report Type: Spontaneous
  Country: RO (occurrence: RO)
  Receive Date: 20220302
  Receipt Date: 20220302
  Transmission Date: 20220423
  Serious: Yes (Hospitalization, Other)
  Sender: FDA-Public Use
  Company Number: RO-BoehringerIngelheim-2022-BI-155076

PATIENT
  Age: 34 Year
  Sex: Male

DRUGS (1)
  1. DABIGATRAN [Suspect]
     Active Substance: DABIGATRAN
     Indication: Peripheral artery thrombosis

REACTIONS (5)
  - Cerebellar haemorrhage [Unknown]
  - Endocarditis bacterial [Recovered/Resolved]
  - Mitral perforation [Recovered/Resolved]
  - Haematoma [Unknown]
  - Anaemia [Unknown]
